FAERS Safety Report 4715724-6 (Version None)
Quarter: 2005Q2

REPORT INFORMATION
  Report Type: 
  Country: None (occurrence: None)
  Receive Date: 20050630
  Receipt Date: 20050314
  Transmission Date: 20051028
  Serious: No
  Sender: FDA-Public Use
  Company Number: 213101

PATIENT
  Sex: Female

DRUGS (3)
  1. AVASTIN [Suspect]
     Indication: NON-SMALL CELL LUNG CANCER
  2. TARCEVA [Concomitant]
  3. ERBITUX (CETUXIMAB) [Concomitant]

REACTIONS (1)
  - HEPATIC ENZYME INCREASED [None]
